FAERS Safety Report 25824884 (Version 3)
Quarter: 2025Q4

REPORT INFORMATION
  Report Type: Spontaneous
  Country: US (occurrence: US)
  Receive Date: 20250919
  Receipt Date: 20251020
  Transmission Date: 20260119
  Serious: No
  Sender: PFIZER
  Company Number: US-PFIZER INC-202500176959

PATIENT
  Age: 49 Year
  Sex: Female

DRUGS (6)
  1. TUKYSA [Interacting]
     Active Substance: TUCATINIB
     Indication: Breast cancer female
     Dosage: 600 MG, 2X/DAY
  2. TUKYSA [Interacting]
     Active Substance: TUCATINIB
     Indication: Metastases to central nervous system
     Dosage: 2 DF, 2X/DAY (2 TABS 2X PER DAY)
  3. TUKYSA [Interacting]
     Active Substance: TUCATINIB
     Dosage: 300 MG, 2X/DAY (TAKE TWO 150MG TABLETS BY MOUTH TWICE DAILY)
     Route: 048
     Dates: start: 202506, end: 202509
  4. XARELTO [Interacting]
     Active Substance: RIVAROXABAN
  5. TRASTUZUMAB [Concomitant]
     Active Substance: TRASTUZUMAB
     Indication: Metastases to central nervous system
     Dosage: UNK
  6. HERCEPTIN HYLECTA [Concomitant]
     Active Substance: HYALURONIDASE-OYSK\TRASTUZUMAB
     Dosage: UNK
     Dates: start: 20250418

REACTIONS (4)
  - Dizziness [Unknown]
  - Drug interaction [Unknown]
  - Off label use [Unknown]
  - Product dose omission issue [Unknown]
